FAERS Safety Report 7731363-7 (Version None)
Quarter: 2011Q3

REPORT INFORMATION
  Report Type: 
  Country: None (occurrence: None)
  Receive Date: 20110906
  Receipt Date: 20110627
  Transmission Date: 20111222
  Serious: No
  Sender: FDA-Public Use
  Company Number: US-AMGEN-USASP2011032895

PATIENT
  Age: 78 Year
  Sex: Female

DRUGS (7)
  1. TYLENOL (CAPLET) [Concomitant]
  2. AVALIDE [Concomitant]
  3. PROLIA [Suspect]
     Indication: OSTEOPOROSIS POSTMENOPAUSAL
     Dates: start: 20110623
  4. VITAMIN D [Concomitant]
     Dosage: UNK
  5. PRAVASTATIN [Concomitant]
  6. CALCIUM CARBONATE [Concomitant]
  7. VITAMIN B-12 [Concomitant]

REACTIONS (1)
  - HEADACHE [None]
